FAERS Safety Report 7315319-4 (Version None)
Quarter: 2011Q1

REPORT INFORMATION
  Report Type: 
  Country: None (occurrence: None)
  Receive Date: 20110225
  Receipt Date: 20110214
  Transmission Date: 20110831
  Serious: Yes (Death, Hospitalization)
  Sender: FDA-Public Use
  Company Number: DE-ROCHE-761725

PATIENT
  Sex: Female

DRUGS (1)
  1. CAPECITABINE [Suspect]
     Indication: RECTAL CANCER METASTATIC
     Route: 065
     Dates: end: 20101101

REACTIONS (3)
  - PLEURAL EFFUSION [None]
  - NEOPLASM MALIGNANT [None]
  - DYSPNOEA [None]
